FAERS Safety Report 8342331-9 (Version None)
Quarter: 2012Q2

REPORT INFORMATION
  Report Type: 
  Country: None (occurrence: None)
  Receive Date: 20120508
  Receipt Date: 20120502
  Transmission Date: 20120825
  Serious: Yes (Other)
  Sender: FDA-Public Use
  Company Number: NZ-AMGEN-NZLSP2012028100

PATIENT
  Age: 40 Year
  Sex: Female

DRUGS (5)
  1. DOXORUBICIN HCL [Concomitant]
  2. NEULASTIM [Suspect]
     Indication: NEUTROPENIA
  3. PREDNISOLONE [Concomitant]
  4. VINCRISTINE [Concomitant]
  5. CYCLOPHOSPHAMIDE [Concomitant]

REACTIONS (2)
  - NEUTROPENIA [None]
  - DRUG INEFFECTIVE [None]
